FAERS Safety Report 25967543 (Version 1)
Quarter: 2025Q4

REPORT INFORMATION
  Report Type: Spontaneous
  Country: US (occurrence: US)
  Receive Date: 20251028
  Receipt Date: 20251028
  Transmission Date: 20260118
  Serious: No
  Sender: MERCK SHARP & DOHME LLC
  Company Number: US-009507513-2334981

PATIENT
  Age: 52 Year
  Sex: Female

DRUGS (1)
  1. KEYTRUDA [Suspect]
     Active Substance: PEMBROLIZUMAB
     Indication: Lung cancer metastatic
     Dosage: EVERY SIX WEEKS
     Route: 042
     Dates: start: 2019, end: 202501

REACTIONS (6)
  - Insomnia [Not Recovered/Not Resolved]
  - Therapy cessation [Unknown]
  - Diplopia [Not Recovered/Not Resolved]
  - Vitiligo [Not Recovered/Not Resolved]
  - Memory impairment [Not Recovered/Not Resolved]
  - Social problem [Unknown]

NARRATIVE: CASE EVENT DATE: 20250101
